FAERS Safety Report 10024905 (Version 2)
Quarter: 2014Q1

REPORT INFORMATION
  Report Type: Spontaneous
  Country: GB (occurrence: GB)
  Receive Date: 20140320
  Receipt Date: 20140327
  Transmission Date: 20141002
  Serious: Yes (Disabling)
  Sender: FDA-Public Use
  Company Number: GB-SA-2014SA035400

PATIENT
  Age: 7 Year
  Sex: Male

DRUGS (2)
  1. DDAVP [Suspect]
     Indication: ENURESIS
     Route: 065
     Dates: start: 20140214
  2. DDAVP [Suspect]
     Indication: ENURESIS
     Route: 065

REACTIONS (2)
  - Faecal incontinence [Recovered/Resolved]
  - Drug ineffective [Unknown]
